FAERS Safety Report 24592395 (Version 1)
Quarter: 2024Q4

REPORT INFORMATION
  Report Type: Report from Study
  Country: US (occurrence: US)
  Receive Date: 20241108
  Receipt Date: 20241108
  Transmission Date: 20250114
  Serious: Yes (Other)
  Sender: ABBVIE
  Company Number: US-ABBVIE-5990516

PATIENT
  Age: 66 Year
  Sex: Female

DRUGS (1)
  1. SKYRIZI [Suspect]
     Active Substance: RISANKIZUMAB-RZAA
     Indication: Product used for unknown indication
     Route: 058
     Dates: start: 20230717

REACTIONS (3)
  - Gastrointestinal polyp haemorrhage [Recovering/Resolving]
  - Blood iron decreased [Unknown]
  - Gastric polyps [Recovering/Resolving]

NARRATIVE: CASE EVENT DATE: 20240101
